FAERS Safety Report 9656886 (Version 3)
Quarter: 2013Q4

REPORT INFORMATION
  Report Type: Spontaneous
  Country: US (occurrence: US)
  Receive Date: 20131030
  Receipt Date: 20131118
  Transmission Date: 20140711
  Serious: Yes (Other)
  Sender: FDA-Public Use
  Company Number: US-DENDREON CORPORATION-2013PROUSA03175

PATIENT
  Age: 66 Year
  Sex: Male

DRUGS (5)
  1. PROVENGE [Suspect]
     Indication: PROSTATE CANCER METASTATIC
     Dosage: 250 ML, SINGLE
     Route: 042
     Dates: start: 20130830, end: 20130830
  2. PROVENGE [Suspect]
     Dosage: 250 ML, SINGLE
     Route: 042
     Dates: start: 20130913, end: 20130913
  3. COUMADIN [Concomitant]
  4. LUPRON [Concomitant]
     Indication: PROSTATE CANCER
     Dosage: UNK
     Dates: start: 201104
  5. ARIXTRA [Concomitant]
     Dosage: UNK
     Dates: end: 201310

REACTIONS (5)
  - Metastases to lung [Not Recovered/Not Resolved]
  - International normalised ratio increased [Not Recovered/Not Resolved]
  - Drug ineffective [Not Recovered/Not Resolved]
  - Constipation [Recovered/Resolved]
  - Haematuria [Unknown]
